FAERS Safety Report 10364875 (Version 2)
Quarter: 2014Q4

REPORT INFORMATION
  Report Type: Spontaneous
  Country: IT (occurrence: IT)
  Receive Date: 20140806
  Receipt Date: 20141112
  Transmission Date: 20150528
  Serious: Yes (Hospitalization)
  Sender: FDA-Public Use
  Company Number: IT-SA-2014SA104669

PATIENT
  Age: 85 Year
  Sex: Female

DRUGS (3)
  1. CLEXANE T [Concomitant]
     Active Substance: ENOXAPARIN SODIUM
     Dosage: CLEXANE T (ENOXAPARIN SODIUM) 6000 IU AXA / 0.6 ML FOR SUBCUTANEOUS USE
     Route: 058
  2. LASIX [Suspect]
     Active Substance: FUROSEMIDE
     Route: 048
     Dates: start: 20140530, end: 20140730
  3. TRIATEC [Suspect]
     Active Substance: RAMIPRIL
     Indication: HYPERTENSION
     Dosage: FORM: DIVISIBLE TABLET
     Route: 048
     Dates: start: 20140101, end: 20140730

REACTIONS (2)
  - Hyperkalaemia [Recovering/Resolving]
  - Hyponatraemia [Recovering/Resolving]

NARRATIVE: CASE EVENT DATE: 20140730
